FAERS Safety Report 8306059-3 (Version None)
Quarter: 2012Q1

REPORT INFORMATION
  Report Type: 
  Country: None (occurrence: None)
  Receive Date: 20120327
  Receipt Date: 20091118
  Transmission Date: 20120608
  Serious: Yes (Other)
  Sender: FDA-Public Use
  Company Number: PHEH2009US14630

PATIENT
  Age: 67 Year

DRUGS (1)
  1. GLEEVEC [Suspect]
     Indication: CHRONIC MYELOID LEUKAEMIA
     Dosage: 300 MG DAILY,ORAL
     Route: 048
     Dates: start: 20080519

REACTIONS (2)
  - THROMBOCYTOPENIA [None]
  - RASH [None]
